FAERS Safety Report 11551465 (Version 3)
Quarter: 2015Q4

REPORT INFORMATION
  Report Type: Spontaneous
  Country: BR (occurrence: BR)
  Receive Date: 20150925
  Receipt Date: 20151127
  Transmission Date: 20160304
  Serious: Yes (Other)
  Sender: FDA-Public Use
  Company Number: BR-ROCHE-1637464

PATIENT
  Sex: Female

DRUGS (1)
  1. MABTHERA [Suspect]
     Active Substance: RITUXIMAB
     Indication: GRANULOMATOSIS WITH POLYANGIITIS
     Dosage: (10MG/ML FRASCO-AMPOLA 50ML)
     Route: 042

REACTIONS (4)
  - Ear pruritus [Unknown]
  - Throat irritation [Unknown]
  - Cough [Unknown]
  - Body temperature increased [Unknown]
